FAERS Safety Report 7791894-0 (Version None)
Quarter: 2011Q4

REPORT INFORMATION
  Report Type: 
  Country: None (occurrence: None)
  Receive Date: 20111003
  Receipt Date: 20110928
  Transmission Date: 20120403
  Serious: Yes (Other)
  Sender: FDA-Public Use
  Company Number: US-SANOFI-AVENTIS-2011SA058191

PATIENT
  Age: 55 Year
  Sex: Female
  Weight: 64 kg

DRUGS (5)
  1. CHONDROITIN W/GLUCOSAMINE [Concomitant]
     Indication: OSTEOARTHRITIS
     Dosage: DOSE:2 TABLESPOON(S)
     Dates: start: 20060829
  2. ALLEGRA [Concomitant]
     Indication: SEASONAL ALLERGY
  3. PLAQUENIL [Suspect]
     Indication: RHEUMATOID ARTHRITIS
     Route: 048
     Dates: start: 20110228, end: 20110907
  4. RESTASIS [Concomitant]
     Dosage: 0.05% 1 DROP IN BOTH EYES TWICE DAILY
     Dates: start: 20090811
  5. VOLTAREN [Concomitant]
     Dates: start: 20100312

REACTIONS (1)
  - MULTIPLE MYELOMA [None]
